FAERS Safety Report 6620890-1 (Version None)
Quarter: 2010Q1

REPORT INFORMATION
  Report Type: 
  Country: None (occurrence: None)
  Receive Date: 20100309
  Receipt Date: 20100303
  Transmission Date: 20100710
  Serious: Yes (Other)
  Sender: FDA-Public Use
  Company Number: IT-WATSON-2010-02478

PATIENT
  Sex: Female

DRUGS (1)
  1. TRELSTAR LA [Suspect]
     Indication: FIBROMATOSIS
     Dosage: 11.25 MG, UNKNOWN
     Route: 065
     Dates: start: 20091101

REACTIONS (1)
  - BLOOD CREATINE PHOSPHOKINASE INCREASED [None]
